FAERS Safety Report 8164481-2 (Version None)
Quarter: 2012Q1

REPORT INFORMATION
  Report Type: 
  Country: None (occurrence: None)
  Receive Date: 20120224
  Receipt Date: 20120217
  Transmission Date: 20120608
  Serious: Yes (Other)
  Sender: FDA-Public Use
  Company Number: US-ABBOTT-12P-163-0895944-00

PATIENT
  Sex: Female
  Weight: 68.1 kg

DRUGS (2)
  1. UNKNOWN BIRTH CONTROL [Concomitant]
     Indication: CONTRACEPTION
     Dates: start: 20020101
  2. HUMIRA [Suspect]
     Indication: PSORIASIS
     Route: 058
     Dates: start: 20091101

REACTIONS (2)
  - VULVAL CANCER [None]
  - BOWEN'S DISEASE [None]
